FAERS Safety Report 24467636 (Version 1)
Quarter: 2024Q4

REPORT INFORMATION
  Report Type: Report from Study
  Country: US (occurrence: US)
  Receive Date: 20241018
  Receipt Date: 20241018
  Transmission Date: 20250115
  Serious: No
  Sender: ROCHE
  Company Number: US-ROCHE-3555162

PATIENT

DRUGS (3)
  1. XOLAIR [Suspect]
     Active Substance: OMALIZUMAB
     Indication: Mast cell activation syndrome
     Route: 065
  2. EPIPEN [Concomitant]
     Active Substance: EPINEPHRINE
  3. MOUNJARO [Concomitant]
     Active Substance: TIRZEPATIDE

REACTIONS (4)
  - Fatigue [Recovered/Resolved]
  - Hypersomnia [Unknown]
  - Insomnia [Unknown]
  - Diarrhoea [Unknown]
